FAERS Safety Report 9276364 (Version 1)
Quarter: 2012Q4

REPORT INFORMATION
  Report Type: Spontaneous
  Country: ES (occurrence: None)
  Receive Date: 20121109
  Receipt Date: 20121109
  Transmission Date: 20130627
  Serious: Yes (Other)
  Sender: FDA-Public Use
  Company Number: 2012S1000206

PATIENT
  Age: 55 Year
  Sex: Male

DRUGS (4)
  1. CUBICIN (DAPTOMYCIN) [Suspect]
     Indication: WOUND SEPSIS
     Route: 042
     Dates: start: 20111026, end: 20111109
  2. GENTAMICIN [Suspect]
     Indication: WOUND SEPSIS
     Route: 042
     Dates: start: 20111017, end: 20111107
  3. VANCOMYCIN [Concomitant]
  4. MERONEM [Concomitant]

REACTIONS (1)
  - Nephropathy toxic [None]
